FAERS Safety Report 24748582 (Version 1)
Quarter: 2024Q4

REPORT INFORMATION
  Report Type: Spontaneous
  Country: US (occurrence: US)
  Receive Date: 20241218
  Receipt Date: 20241218
  Transmission Date: 20250115
  Serious: Yes (Life-Threatening, Other)
  Sender: ACCORD
  Company Number: US-Accord-456783

PATIENT
  Age: 76 Year
  Sex: Male
  Weight: 85.4 kg

DRUGS (31)
  1. CARBOPLATIN [Suspect]
     Active Substance: CARBOPLATIN
     Indication: Non-small cell lung cancer metastatic
     Dosage: 5 AUC, 1Q3W
     Route: 042
     Dates: start: 20230925
  2. PEMETREXED [Suspect]
     Active Substance: PEMETREXED
     Indication: Non-small cell lung cancer metastatic
     Dosage: 500 MILLIGRAM/SQ. METER 1Q3W; INTRAVENOUS
     Route: 042
     Dates: start: 20230925
  3. PEMBROLIZUMAB [Concomitant]
     Active Substance: PEMBROLIZUMAB
     Indication: Non-small cell lung cancer metastatic
     Dosage: 200 MILLIGRAM, 1Q3W; INTRAVENOUS
     Route: 042
     Dates: start: 20230925
  4. LIPITOR [Concomitant]
     Active Substance: ATORVASTATIN CALCIUM
     Dates: start: 20190304
  5. LIORESAL [Concomitant]
     Active Substance: BACLOFEN
     Dates: start: 20230901, end: 20231001
  6. CELEBREX [Concomitant]
     Active Substance: CELECOXIB
     Dates: start: 20210618
  7. FENOFIBRATE [Concomitant]
     Active Substance: FENOFIBRATE
     Dates: start: 20120411, end: 20240124
  8. ECOTRIN [Concomitant]
     Active Substance: ASPIRIN
     Dates: start: 20231004, end: 20240224
  9. FOLATE SODIUM [Concomitant]
     Active Substance: FOLATE SODIUM
     Dates: start: 20231004, end: 20240224
  10. HERBALS\TURMERIC [Concomitant]
     Active Substance: HERBALS\TURMERIC
     Dates: start: 20190304
  11. METAMUCIL [Concomitant]
     Active Substance: PLANTAGO SEED
     Dates: start: 20120411, end: 20240224
  12. OMEGA 3 FISH [Concomitant]
     Dates: start: 20120411, end: 20240126
  13. VITAMINS [Concomitant]
     Active Substance: VITAMINS
     Dates: start: 20120411, end: 20240126
  14. LISINOPRIL [Concomitant]
     Active Substance: LISINOPRIL
     Dates: start: 20121221
  15. TESTOSTERONE CYPIONATE [Concomitant]
     Active Substance: TESTOSTERONE CYPIONATE
     Dates: start: 20120411
  16. LASIX [Concomitant]
     Active Substance: FUROSEMIDE
     Dates: start: 20230817, end: 20231106
  17. ZOFRAN [Concomitant]
     Active Substance: ONDANSETRON HYDROCHLORIDE
     Dates: start: 20230922, end: 20240126
  18. DECADRON [Concomitant]
     Active Substance: DEXAMETHASONE
     Dates: start: 20230925, end: 20240109
  19. COMPAZINE [Concomitant]
     Active Substance: PROCHLORPERAZINE MALEATE
     Dates: start: 20230925, end: 20240126
  20. PRAMOXINE HYDROCHLORIDE [Concomitant]
     Active Substance: PRAMOXINE HYDROCHLORIDE
     Dates: start: 20231004, end: 20240126
  21. REMERON [Concomitant]
     Active Substance: MIRTAZAPINE
     Dates: start: 20231004, end: 20231127
  22. SODIUM PHOSPHATE [Concomitant]
     Active Substance: SODIUM PHOSPHATE
     Dates: start: 20231016, end: 20231016
  23. FOSAPREPITANT [Concomitant]
     Active Substance: FOSAPREPITANT
     Dates: start: 20230925, end: 20231127
  24. ALOXI [Concomitant]
     Active Substance: PALONOSETRON HYDROCHLORIDE
     Dates: start: 20230925, end: 20231127
  25. ZOMETA [Concomitant]
     Active Substance: ZOLEDRONIC ACID
     Dates: start: 20240113
  26. DEXAMETHASONE [Concomitant]
     Active Substance: DEXAMETHASONE
     Dates: start: 20240105, end: 20240107
  27. SOLU-MEDROL [Concomitant]
     Active Substance: METHYLPREDNISOLONE SODIUM SUCCINATE
     Dates: start: 20240113, end: 20240115
  28. HUMAN IMMUNOGLOBULIN G [Concomitant]
     Active Substance: HUMAN IMMUNOGLOBULIN G
     Dates: start: 20240213, end: 20240214
  29. ROCEPHIN [Concomitant]
     Active Substance: CEFTRIAXONE SODIUM
     Dates: start: 20240126, end: 20240126
  30. MYCOSTATIN [Concomitant]
     Active Substance: NYSTATIN
     Dates: start: 20240127, end: 20240130
  31. DECADRON [Concomitant]
     Active Substance: DEXAMETHASONE
     Dates: start: 20240127, end: 20240128

REACTIONS (1)
  - Neutrophil count decreased [Unknown]

NARRATIVE: CASE EVENT DATE: 20231023
